FAERS Safety Report 8831886 (Version 1)
Quarter: 2012Q4

REPORT INFORMATION
  Report Type: 
  Country: US (occurrence: US)
  Receive Date: 20121009
  Receipt Date: 20121009
  Transmission Date: 20130627
  Serious: Yes (Hospitalization, Other)
  Sender: FDA-Public Use
  Company Number: US-GENZYME-CLOF-1002317

PATIENT
  Age: 4 Year
  Sex: Male
  Weight: 24.4 kg

DRUGS (17)
  1. CLOLAR [Suspect]
     Indication: PRODUCT USED FOR UNKNOWN INDICATION
     Dosage: UNK
     Route: 065
  2. VELCADE [Suspect]
     Indication: LYMPHOCYTIC LEUKAEMIA
     Dosage: 13 mg/m2, Cyclic over 3-5 sec on day 1, 4,8 and 11
     Route: 040
     Dates: start: 20120703, end: 20120829
  3. CYTARABINE [Suspect]
     Indication: LYMPHOCYTIC LEUKAEMIA
     Dosage: 30-70 mg; cyclic on day 1
     Route: 037
     Dates: start: 20120703, end: 20120703
  4. CYTARABINE [Suspect]
     Dosage: 3000 mg/m2, over 3 hours every 12 hours for 4 days
     Route: 037
     Dates: start: 20120703, end: 20120703
  5. VINCRISTINE [Suspect]
     Indication: LYMPHOCYTIC LEUKAEMIA
     Dosage: 1.5 mg/m2, UNK
     Route: 040
     Dates: start: 20120703, end: 20120726
  6. DOXORUBICIN [Suspect]
     Indication: LYMPHOCYTIC LEUKAEMIA
     Dosage: 60 mg/m2, cyclic over 15 min on day1
     Route: 042
     Dates: start: 20120703
  7. PREDNISONE [Suspect]
     Indication: LYMPHOCYTIC LEUKAEMIA
     Dosage: 20 mg/m2, bid
     Route: 048
     Dates: start: 20120703, end: 20120726
  8. PEGASPARGASE [Suspect]
     Indication: LYMPHOCYTIC LEUKAEMIA
     Dosage: 2500 iu/m2, UNK
     Route: 065
     Dates: start: 20120703, end: 20120726
  9. PEGASPARGASE [Suspect]
     Dosage: 6000 iu/m2, on day 2 and 9
     Route: 030
  10. PEGASPARGASE [Suspect]
     Dosage: UNK
     Route: 042
     Dates: start: 20120703, end: 20120726
  11. METHOTREXATE [Suspect]
     Indication: LYMPHOCYTIC LEUKAEMIA
     Dosage: 8-15 mg on day 15 and 29
     Route: 037
     Dates: start: 20120703
  12. METHOTREXATE [Suspect]
     Dosage: 500 mg/m2, UNK
     Route: 042
  13. METHOTREXATE [Suspect]
     Dosage: 4500mg/m2, UNK over 23.5 hours on day
     Route: 042
     Dates: end: 20120822
  14. ETOPOSIDE [Suspect]
     Indication: LYMPHOCYTIC LEUKAEMIA
     Dosage: 100 mg/m2, qd
     Route: 042
     Dates: start: 20120703, end: 20120826
  15. CYCLOPHOSPHAMIDE [Suspect]
     Indication: LYMPHOCYTIC LEUKAEMIA
     Dosage: 440 mg/m2, qd
     Route: 042
     Dates: start: 20120703, end: 20120826
  16. AMPHOTERICIN B [Suspect]
     Indication: PRODUCT USED FOR UNKNOWN INDICATION
  17. LASIX [Suspect]
     Indication: PRODUCT USED FOR UNKNOWN INDICATION

REACTIONS (21)
  - Gastric haemorrhage [Unknown]
  - Depressed level of consciousness [Unknown]
  - Eye pain [Unknown]
  - Acute lymphocytic leukaemia recurrent [Unknown]
  - Hepatomegaly [Unknown]
  - Left ventricular dysfunction [Unknown]
  - Hypokalaemia [Unknown]
  - Hyponatraemia [Unknown]
  - Pain in extremity [Unknown]
  - Respiratory failure [Unknown]
  - Device related infection [Unknown]
  - Proctalgia [Unknown]
  - Abdominal pain [Unknown]
  - Sepsis [Unknown]
  - Back pain [Unknown]
  - Tachycardia [Unknown]
  - Headache [Unknown]
  - Hypoxia [Unknown]
  - Pulmonary oedema [Unknown]
  - Hypertension [Unknown]
  - Dyspnoea [Unknown]
